FAERS Safety Report 14412670 (Version 5)
Quarter: 2018Q1

REPORT INFORMATION
  Report Type: Spontaneous
  Country: SI (occurrence: SI)
  Receive Date: 20180119
  Receipt Date: 20180222
  Transmission Date: 20180509
  Serious: Yes (Hospitalization, Other)
  Sender: FDA-Public Use
  Company Number: PHHY2018SI005607

PATIENT
  Age: 67 Year
  Sex: Male
  Weight: 110 kg

DRUGS (3)
  1. SPIRONOLACTONE. [Concomitant]
     Active Substance: SPIRONOLACTONE
     Indication: CARDIAC FAILURE
     Dosage: 25 MG, QD
     Route: 065
     Dates: start: 20040901
  2. BISOPROLOL [Concomitant]
     Active Substance: BISOPROLOL
     Indication: HYPERCHOLESTEROLAEMIA
     Dosage: 25 MG, BID
     Route: 065
     Dates: start: 20160217
  3. EDEMID [Suspect]
     Active Substance: FUROSEMIDE
     Indication: CARDIAC FAILURE
     Dosage: 40 MG, QD
     Route: 048
     Dates: start: 20040901

REACTIONS (6)
  - Weight increased [Recovered/Resolved]
  - Diabetes mellitus [Recovering/Resolving]
  - Nocturnal dyspnoea [Recovered/Resolved]
  - Oedema peripheral [Recovered/Resolved]
  - Hypothyroidism [Unknown]
  - Cardiac failure [Recovered/Resolved]

NARRATIVE: CASE EVENT DATE: 2016
